FAERS Safety Report 23379762 (Version 1)
Quarter: 2024Q1

REPORT INFORMATION
  Report Type: Report from Study
  Country: DE (occurrence: DE)
  Receive Date: 20240108
  Receipt Date: 20240108
  Transmission Date: 20240410
  Serious: Yes (Other)
  Sender: FDA-Public Use
  Company Number: DE-ABBVIE-5568738

PATIENT
  Sex: Female

DRUGS (2)
  1. RINVOQ [Suspect]
     Active Substance: UPADACITINIB
     Indication: Rheumatoid arthritis
     Route: 048
     Dates: start: 202201, end: 202305
  2. BISOPROLOL [Concomitant]
     Active Substance: BISOPROLOL\BISOPROLOL FUMARATE
     Indication: Hypertension
     Route: 065

REACTIONS (12)
  - Skin cancer [Recovered/Resolved]
  - Acne [Recovered/Resolved]
  - Illness [Recovered/Resolved]
  - Bronchitis [Recovered/Resolved]
  - Cough [Recovered/Resolved]
  - Gastrointestinal disorder [Not Recovered/Not Resolved]
  - Vomiting [Recovered/Resolved]
  - Herpes virus infection [Recovered/Resolved]
  - Arthropathy [Not Recovered/Not Resolved]
  - Feeding disorder [Recovered/Resolved]
  - Rheumatoid arthritis [Unknown]
  - Bronchitis [Not Recovered/Not Resolved]

NARRATIVE: CASE EVENT DATE: 20220101
